FAERS Safety Report 16445748 (Version 2)
Quarter: 2019Q3

REPORT INFORMATION
  Report Type: Spontaneous
  Country: CZ (occurrence: CZ)
  Receive Date: 20190618
  Receipt Date: 20190703
  Transmission Date: 20191004
  Serious: Yes (Other)
  Sender: FDA-Public Use
  Company Number: CZ-ELI_LILLY_AND_COMPANY-CZ201906006372

PATIENT
  Age: 71 Year
  Sex: Female

DRUGS (4)
  1. PEMETREXED. [Suspect]
     Active Substance: PEMETREXED
     Indication: MESOTHELIOMA MALIGNANT
  2. PEMETREXED. [Suspect]
     Active Substance: PEMETREXED
     Indication: NEOADJUVANT THERAPY
     Dosage: 4 CYCLES
     Route: 065
  3. CISPLATIN. [Suspect]
     Active Substance: CISPLATIN
     Indication: NEOADJUVANT THERAPY
     Dosage: 100 MG/M2, CYCLICAL (4 CYCLES)
     Route: 065
  4. CISPLATIN. [Suspect]
     Active Substance: CISPLATIN
     Indication: MESOTHELIOMA MALIGNANT

REACTIONS (4)
  - Respiratory failure [Recovered/Resolved]
  - Pulmonary air leakage [Unknown]
  - Pancreatitis [Unknown]
  - Renal failure [Recovered/Resolved]
